FAERS Safety Report 5123991-2 (Version None)
Quarter: 2006Q4

REPORT INFORMATION
  Report Type: 
  Country: None (occurrence: None)
  Receive Date: 20061010
  Receipt Date: 20060929
  Transmission Date: 20070319
  Serious: Yes (Disabling)
  Sender: FDA-Public Use
  Company Number: US-MERCK-0610USA01394

PATIENT
  Age: 15 Year
  Sex: Female
  Weight: 96 kg

DRUGS (1)
  1. MAXALT [Suspect]
     Indication: HEADACHE
     Route: 048

REACTIONS (2)
  - DRUG INEFFECTIVE [None]
  - PRESCRIBED OVERDOSE [None]
